FAERS Safety Report 18345685 (Version 1)
Quarter: 2020Q4

REPORT INFORMATION
  Report Type: Spontaneous
  Country: DE (occurrence: DE)
  Receive Date: 20201005
  Receipt Date: 20201005
  Transmission Date: 20210114
  Serious: Yes (Other)
  Sender: FDA-Public Use
  Company Number: DE-DEXPHARM-20200903

PATIENT
  Age: 27 Year
  Sex: Female

DRUGS (1)
  1. VENLAFAXIN AL 37.5 MG [Suspect]
     Active Substance: VENLAFAXINE HYDROCHLORIDE

REACTIONS (9)
  - Hypotension [Unknown]
  - Tremor [Unknown]
  - Psychomotor hyperactivity [Unknown]
  - Menstrual disorder [Unknown]
  - Decreased appetite [Unknown]
  - Arrhythmia [Unknown]
  - Dizziness [Unknown]
  - Somnolence [Unknown]
  - Urinary hesitation [Unknown]
